FAERS Safety Report 25814850 (Version 4)
Quarter: 2025Q4

REPORT INFORMATION
  Report Type: Report from Study
  Country: US (occurrence: US)
  Receive Date: 20250918
  Receipt Date: 20251124
  Transmission Date: 20260117
  Serious: No
  Sender: TRAVERE THERAPEUTICS
  Company Number: US-TRAVERE-2025TVT01201

PATIENT
  Age: 40 Year
  Sex: Female

DRUGS (15)
  1. FILSPARI [Suspect]
     Active Substance: SPARSENTAN
     Indication: IgA nephropathy
     Route: 048
     Dates: start: 202505
  2. FILSPARI [Suspect]
     Active Substance: SPARSENTAN
     Route: 048
     Dates: start: 202505
  3. FILSPARI [Suspect]
     Active Substance: SPARSENTAN
     Route: 048
     Dates: start: 20250603, end: 20250923
  4. FILSPARI [Suspect]
     Active Substance: SPARSENTAN
     Route: 048
     Dates: start: 20250923
  5. FARXIGA [Concomitant]
     Active Substance: DAPAGLIFLOZIN PROPANEDIOL
  6. PREDNISONE [Concomitant]
     Active Substance: PREDNISONE
  7. ROSUVASTATIN [Concomitant]
     Active Substance: ROSUVASTATIN
  8. SLYND [Concomitant]
     Active Substance: DROSPIRENONE
  9. VITAMIN D3 [Concomitant]
     Active Substance: CHOLECALCIFEROL
  10. PANTOPRAZOLE [Concomitant]
     Active Substance: PANTOPRAZOLE
  11. ACCRUFER [Concomitant]
     Active Substance: FERRIC MALTOL
  12. ALLOPURINOL [Concomitant]
     Active Substance: ALLOPURINOL
  13. CELLCEPT [Concomitant]
     Active Substance: MYCOPHENOLATE MOFETIL
  14. VITAMIN D2 [Concomitant]
     Active Substance: ERGOCALCIFEROL
  15. ONDANSETRON [Concomitant]
     Active Substance: ONDANSETRON

REACTIONS (15)
  - Blood pressure decreased [Unknown]
  - Loss of consciousness [Unknown]
  - Fungal infection [Unknown]
  - Glomerular filtration rate decreased [Unknown]
  - Proteinuria [Unknown]
  - Scab [Unknown]
  - Oropharyngeal plaque [Unknown]
  - Skin lesion [Unknown]
  - Rash [Unknown]
  - Anaemia [Unknown]
  - Neutropenia [Unknown]
  - Eczema [Unknown]
  - Dizziness postural [Recovered/Resolved]
  - Pruritus [Recovered/Resolved]
  - Urticaria [Recovered/Resolved]

NARRATIVE: CASE EVENT DATE: 20250601
